FAERS Safety Report 10867193 (Version 2)
Quarter: 2015Q3

REPORT INFORMATION
  Report Type: Report from Study
  Country: JP (occurrence: JP)
  Receive Date: 20150225
  Receipt Date: 20150715
  Transmission Date: 20151125
  Serious: Yes (Other)
  Sender: FDA-Public Use
  Company Number: PHJP2015JP002155

PATIENT
  Age: 63 Year
  Sex: Female

DRUGS (26)
  1. CLOZARIL [Suspect]
     Active Substance: CLOZAPINE
     Dosage: 125 MG, QD
     Route: 048
     Dates: start: 20130506, end: 20130508
  2. CLOZARIL [Suspect]
     Active Substance: CLOZAPINE
     Dosage: 350 MG, QD
     Route: 048
     Dates: start: 20130628, end: 20130711
  3. ROHYPNOL [Suspect]
     Active Substance: FLUNITRAZEPAM
     Indication: SCHIZOPHRENIA, PARANOID TYPE
     Dosage: 2 MG, QD
     Route: 048
     Dates: start: 20130418, end: 20130526
  4. CLOZARIL [Suspect]
     Active Substance: CLOZAPINE
     Dosage: 25 MG, QD
     Route: 048
     Dates: start: 20130426, end: 20130427
  5. CLOZARIL [Suspect]
     Active Substance: CLOZAPINE
     Dosage: 37.5 MG, QD
     Route: 048
     Dates: start: 20130428, end: 20130428
  6. CLOZARIL [Suspect]
     Active Substance: CLOZAPINE
     Dosage: 175 MG, QD
     Route: 048
     Dates: start: 20130512, end: 20130514
  7. CLOZARIL [Suspect]
     Active Substance: CLOZAPINE
     Dosage: 300 MG, QD
     Route: 048
     Dates: start: 20130524, end: 20130530
  8. DEPAKENE [Suspect]
     Active Substance: VALPROIC ACID
     Indication: SCHIZOPHRENIA, PARANOID TYPE
     Dosage: 900 MG, QD
     Route: 048
     Dates: start: 20130327, end: 20130501
  9. PANTOSIN [Concomitant]
     Active Substance: PANTETHINE
     Indication: PRODUCT USED FOR UNKNOWN INDICATION
     Dosage: 600 MG, QD
     Route: 048
     Dates: start: 20120525
  10. CLOZARIL [Suspect]
     Active Substance: CLOZAPINE
     Dosage: 50 MG, QD
     Route: 048
     Dates: start: 20130429, end: 20130501
  11. CLOZARIL [Suspect]
     Active Substance: CLOZAPINE
     Dosage: 150 MG, QD
     Route: 048
     Dates: start: 20130509, end: 20130511
  12. CLOZARIL [Suspect]
     Active Substance: CLOZAPINE
     Dosage: 225 MG, QD
     Route: 048
     Dates: start: 20130905, end: 20130925
  13. CLOZARIL [Suspect]
     Active Substance: CLOZAPINE
     Dosage: 100 MG, QD
     Route: 048
     Dates: start: 20130504, end: 20130505
  14. CLOZARIL [Suspect]
     Active Substance: CLOZAPINE
     Dosage: 300 MG, QD
     Route: 048
     Dates: start: 20130712, end: 20130724
  15. CLOZARIL [Suspect]
     Active Substance: CLOZAPINE
     Dosage: 250 MG, QD
     Route: 048
     Dates: start: 20130926, end: 20131023
  16. CLOZARIL [Suspect]
     Active Substance: CLOZAPINE
     Dosage: 300 MG, QD
     Route: 048
     Dates: start: 20131024, end: 20131025
  17. DEPAKENE [Suspect]
     Active Substance: VALPROIC ACID
     Dosage: 600 MG, QD
     Route: 048
     Dates: start: 20130509, end: 20130515
  18. CLOZARIL [Suspect]
     Active Substance: CLOZAPINE
     Dosage: 200 MG, QD
     Route: 048
     Dates: start: 20130820, end: 20130904
  19. DEPAKENE [Suspect]
     Active Substance: VALPROIC ACID
     Dosage: 750 MG, QD
     Route: 048
     Dates: start: 20130502, end: 20130508
  20. DEPAKENE [Suspect]
     Active Substance: VALPROIC ACID
     Dosage: 300 MG, QD
     Route: 048
     Dates: start: 20130516, end: 20130523
  21. CLOZARIL [Suspect]
     Active Substance: CLOZAPINE
     Indication: SCHIZOPHRENIA
     Dosage: 12.5 MG, QD
     Route: 048
     Dates: start: 20130425, end: 20130425
  22. CLOZARIL [Suspect]
     Active Substance: CLOZAPINE
     Dosage: 75 MG, QD
     Route: 048
     Dates: start: 20130502, end: 20130503
  23. CLOZARIL [Suspect]
     Active Substance: CLOZAPINE
     Dosage: 200 MG, QD
     Route: 048
     Dates: start: 20130515, end: 20130523
  24. CLOZARIL [Suspect]
     Active Substance: CLOZAPINE
     Dosage: 400 MG, QD
     Route: 048
     Dates: start: 20130531, end: 20130627
  25. CLOZARIL [Suspect]
     Active Substance: CLOZAPINE
     Dosage: 250 MG, QD
     Route: 048
     Dates: start: 20130725, end: 20130819
  26. MAGNEESIUM [Concomitant]
     Active Substance: MAGNESIUM
     Indication: PRODUCT USED FOR UNKNOWN INDICATION
     Dosage: 2.1 G, QD
     Route: 048
     Dates: start: 20120525

REACTIONS (4)
  - Salivary hypersecretion [Not Recovered/Not Resolved]
  - Constipation [Recovering/Resolving]
  - Blood pressure decreased [Recovering/Resolving]
  - Somnolence [Recovered/Resolved]

NARRATIVE: CASE EVENT DATE: 20130627
